FAERS Safety Report 5576206-5 (Version None)
Quarter: 2007Q4

REPORT INFORMATION
  Report Type: 
  Country: None (occurrence: None)
  Receive Date: 20071228
  Receipt Date: 20071218
  Transmission Date: 20080405
  Serious: Yes (Life-Threatening, Hospitalization, Disabling)
  Sender: FDA-Public Use
  Company Number: US-ROCHE-506951

PATIENT
  Age: 43 Year
  Sex: Female
  Weight: 50.8 kg

DRUGS (3)
  1. PEGASYS [Suspect]
     Indication: HEPATITIS C
     Route: 058
  2. RIBAVIRIN [Suspect]
     Indication: HEPATITIS C
     Route: 048
     Dates: start: 20060501, end: 20070701
  3. PROPRANOLOL [Concomitant]
     Route: 048

REACTIONS (1)
  - INTRACRANIAL ANEURYSM [None]
